FAERS Safety Report 8204697-X (Version None)
Quarter: 2012Q1

REPORT INFORMATION
  Report Type: 
  Country: None (occurrence: None)
  Receive Date: 20120309
  Receipt Date: 20120301
  Transmission Date: 20120608
  Serious: Yes (Hospitalization)
  Sender: FDA-Public Use
  Company Number: 2012SP005211

PATIENT
  Age: 53 Year
  Sex: Female

DRUGS (3)
  1. LYRICA [Concomitant]
  2. TRILEPTAL [Concomitant]
  3. TEMODAR [Suspect]
     Indication: BRAIN NEOPLASM MALIGNANT
     Dosage: 140 MG;QD;PO
     Route: 048
     Dates: start: 20120108

REACTIONS (7)
  - ASTHENIA [None]
  - VOMITING [None]
  - CHILLS [None]
  - PRODUCT QUALITY ISSUE [None]
  - IMPAIRED WORK ABILITY [None]
  - INFLUENZA LIKE ILLNESS [None]
  - NAUSEA [None]
